FAERS Safety Report 6445112-6 (Version None)
Quarter: 2009Q4

REPORT INFORMATION
  Report Type: 
  Country: None (occurrence: None)
  Receive Date: 20091118
  Receipt Date: 20091110
  Transmission Date: 20100525
  Serious: Yes (Other)
  Sender: FDA-Public Use
  Company Number: US-PFIZER INC-2009273234

PATIENT
  Sex: Female
  Weight: 95 kg

DRUGS (5)
  1. DETROL LA [Suspect]
     Dosage: UNK
  2. REBIF [Suspect]
     Indication: MULTIPLE SCLEROSIS
     Dosage: UNK
     Dates: start: 20060101, end: 20060101
  3. AMANTADINE [Suspect]
     Dosage: UNK
  4. LEVOTHYROXINE [Concomitant]
     Dosage: UNK
  5. CALCIUM [Concomitant]
     Dosage: UNK

REACTIONS (1)
  - AMNIOTIC FLUID VOLUME DECREASED [None]
